FAERS Safety Report 20008123 (Version 2)
Quarter: 2021Q4

REPORT INFORMATION
  Report Type: Spontaneous
  Country: UA (occurrence: None)
  Receive Date: 20211029
  Receipt Date: 20211124
  Transmission Date: 20220304
  Serious: Yes (Death, Hospitalization)
  Sender: FDA-Public Use
  Company Number: UA-ROCHE-2946031

PATIENT
  Age: 70 Year
  Sex: Male

DRUGS (7)
  1. TECENTRIQ [Suspect]
     Active Substance: ATEZOLIZUMAB
     Indication: Lung adenocarcinoma
     Route: 041
     Dates: start: 20201211, end: 20210305
  2. TARCEVA [Concomitant]
     Active Substance: ERLOTINIB HYDROCHLORIDE
     Route: 048
     Dates: start: 20210509, end: 20210723
  3. KEYTRUDA [Concomitant]
     Active Substance: PEMBROLIZUMAB
     Dosage: 8 DOSES
  4. ABRAXANE [Concomitant]
     Active Substance: PACLITAXEL
  5. DOCETAXEL [Concomitant]
     Active Substance: DOCETAXEL
     Dates: start: 20200701, end: 20200902
  6. AVASTIN [Concomitant]
     Active Substance: BEVACIZUMAB
     Dates: start: 20200318, end: 20200612
  7. VINORELBINE [Concomitant]
     Active Substance: VINORELBINE TARTRATE

REACTIONS (3)
  - Death [Fatal]
  - Gastrointestinal haemorrhage [Unknown]
  - Diarrhoea [Unknown]

NARRATIVE: CASE EVENT DATE: 20211008
